FAERS Safety Report 4872198-2 (Version None)
Quarter: 2006Q1

REPORT INFORMATION
  Report Type: 
  Country: None (occurrence: None)
  Receive Date: 20060104
  Receipt Date: 20051228
  Transmission Date: 20060701
  Serious: Yes (Hospitalization)
  Sender: FDA-Public Use
  Company Number: FR-BRISTOL-MYERS SQUIBB COMPANY-13234836

PATIENT
  Age: 49 Year
  Sex: Female

DRUGS (9)
  1. METFORMIN HCL [Suspect]
     Indication: WEIGHT DECREASED
  2. VASTEN TABS [Suspect]
     Indication: HYPERCHOLESTEROLAEMIA
     Route: 048
  3. PROZAC [Suspect]
     Route: 048
  4. EPHEDRINE [Suspect]
     Indication: WEIGHT DECREASED
  5. ORTHOSIPHON ARISTATUS [Suspect]
     Indication: WEIGHT DECREASED
  6. VALIUM [Concomitant]
  7. MEPRONIZINE [Concomitant]
  8. DIERGOSPRAY [Concomitant]
  9. GLUCOMANNAN [Concomitant]
     Indication: WEIGHT DECREASED

REACTIONS (3)
  - DIARRHOEA [None]
  - MELANOSIS COLI [None]
  - SELF-MEDICATION [None]
